FAERS Safety Report 19575693 (Version 1)
Quarter: 2021Q3

REPORT INFORMATION
  Report Type: Spontaneous
  Country: BR (occurrence: BR)
  Receive Date: 20210719
  Receipt Date: 20210719
  Transmission Date: 20211014
  Serious: Yes (Hospitalization, Other)
  Sender: FDA-Public Use
  Company Number: BR-009507513-2107BRA004358

PATIENT
  Age: 15 Day

DRUGS (2)
  1. RALTEGRAVIR POTASSIUM [Suspect]
     Active Substance: RALTEGRAVIR POTASSIUM
     Indication: PROPHYLAXIS AGAINST HIV INFECTION
     Dosage: 100 MG ORAL SUSPENSION IN 5 ML EVERY 12 HOURS FOR 13 DAYS
     Route: 048
     Dates: start: 2021, end: 2021
  2. LAMIVUDINE. [Suspect]
     Active Substance: LAMIVUDINE
     Indication: PROPHYLAXIS AGAINST HIV INFECTION
     Dosage: 7 ML (MILLILITRE)
     Route: 048
     Dates: start: 2021, end: 2021

REACTIONS (3)
  - Haemorrhage intracranial [Not Recovered/Not Resolved]
  - Accidental overdose [Unknown]
  - Product preparation error [Unknown]

NARRATIVE: CASE EVENT DATE: 2021
